FAERS Safety Report 10679288 (Version 7)
Quarter: 2015Q3

REPORT INFORMATION
  Report Type: Report from Study
  Country: CA (occurrence: CA)
  Receive Date: 20141229
  Receipt Date: 20150821
  Transmission Date: 20151125
  Serious: Yes (Other)
  Sender: FDA-Public Use
  Company Number: CA-INCYTE CORPORATION-2013IN002396

PATIENT
  Age: 80 Year
  Sex: Female

DRUGS (10)
  1. JAKAFI [Suspect]
     Active Substance: RUXOLITINIB
     Indication: MYELOFIBROSIS
     Dosage: 10 MG, BID
     Route: 048
     Dates: start: 20130815
  2. JAKAFI [Suspect]
     Active Substance: RUXOLITINIB
     Dosage: 3 DF, TID
     Route: 048
  3. JAKAFI [Suspect]
     Active Substance: RUXOLITINIB
     Dosage: 2 DF, BID
     Route: 048
  4. JAKAFI [Suspect]
     Active Substance: RUXOLITINIB
     Dosage: 10 MG, BID
     Route: 048
  5. JAKAFI [Suspect]
     Active Substance: RUXOLITINIB
     Dosage: 15 MG, (5 MG QAM AND 10 MG QPM)
     Route: 048
  6. CITALOPRAM [Concomitant]
     Active Substance: CITALOPRAM HYDROBROMIDE
     Indication: PRODUCT USED FOR UNKNOWN INDICATION
     Dosage: UNK
  7. JAKAFI [Suspect]
     Active Substance: RUXOLITINIB
     Dosage: 5 MG, BID
     Route: 048
     Dates: start: 20131126
  8. ASA [Concomitant]
     Active Substance: ASPIRIN
     Indication: PRODUCT USED FOR UNKNOWN INDICATION
     Dosage: UNK
  9. CALCIUM [Concomitant]
     Active Substance: CALCIUM
     Indication: PRODUCT USED FOR UNKNOWN INDICATION
     Dosage: UNK
  10. LIPITOR [Concomitant]
     Active Substance: ATORVASTATIN CALCIUM
     Indication: PRODUCT USED FOR UNKNOWN INDICATION
     Dosage: UNK

REACTIONS (14)
  - Increased appetite [Unknown]
  - Vomiting [Unknown]
  - Pain in extremity [Unknown]
  - Pruritus [Not Recovered/Not Resolved]
  - Dry mouth [Unknown]
  - Renal pain [Unknown]
  - Arthralgia [Unknown]
  - Flatulence [Unknown]
  - Vascular rupture [Unknown]
  - Anaemia [Not Recovered/Not Resolved]
  - Weight increased [Unknown]
  - Loss of consciousness [Unknown]
  - Abdominal distension [Unknown]
  - Peripheral vascular disorder [Unknown]

NARRATIVE: CASE EVENT DATE: 20150625
